FAERS Safety Report 7914601-7 (Version None)
Quarter: 2011Q4

REPORT INFORMATION
  Report Type: 
  Country: None (occurrence: None)
  Receive Date: 20111115
  Receipt Date: 20111105
  Transmission Date: 20120403
  Serious: Yes (Death, Hospitalization)
  Sender: FDA-Public Use
  Company Number: PHHY2011JP097795

PATIENT
  Age: 53 Year
  Sex: Female

DRUGS (1)
  1. PAMIDRONATE DISODIUM [Suspect]
     Indication: METASTASES TO BONE
     Dosage: 90 MG, QMO

REACTIONS (21)
  - FOCAL SEGMENTAL GLOMERULOSCLEROSIS [None]
  - DYSPNOEA [None]
  - BLOOD CREATININE INCREASED [None]
  - BLOOD URIC ACID INCREASED [None]
  - BLOOD ALBUMIN DECREASED [None]
  - PROTEIN TOTAL DECREASED [None]
  - BLOOD CALCIUM INCREASED [None]
  - HAEMOGLOBIN DECREASED [None]
  - NEOPLASM MALIGNANT [None]
  - GENERAL PHYSICAL HEALTH DETERIORATION [None]
  - RENAL FAILURE [None]
  - NAUSEA [None]
  - BLOOD PRESSURE INCREASED [None]
  - BONE PAIN [None]
  - LYMPHADENOPATHY [None]
  - BLOOD PHOSPHORUS INCREASED [None]
  - HAEMATOCRIT DECREASED [None]
  - NEOPLASM PROGRESSION [None]
  - BREAST MASS [None]
  - DECREASED APPETITE [None]
  - OEDEMA PERIPHERAL [None]
